FAERS Safety Report 24205683 (Version 1)
Quarter: 2024Q3

REPORT INFORMATION
  Report Type: Spontaneous
  Country: CN (occurrence: CN)
  Receive Date: 20240813
  Receipt Date: 20240813
  Transmission Date: 20241016
  Serious: Yes (Life-Threatening, Hospitalization, Other)
  Sender: ABBVIE
  Company Number: CN-ABBVIE-5876540

PATIENT
  Age: 43 Year
  Sex: Female
  Weight: 45 kg

DRUGS (1)
  1. VENETOCLAX [Suspect]
     Active Substance: VENETOCLAX
     Indication: Acute myeloid leukaemia
     Route: 048
     Dates: start: 20240716, end: 20240729

REACTIONS (3)
  - Agranulocytosis [Recovering/Resolving]
  - Platelet count decreased [Recovering/Resolving]
  - Acute myeloid leukaemia [Unknown]

NARRATIVE: CASE EVENT DATE: 20240101
